FAERS Safety Report 24724853 (Version 1)
Quarter: 2024Q4

REPORT INFORMATION
  Report Type: Spontaneous
  Country: CN (occurrence: CN)
  Receive Date: 20241212
  Receipt Date: 20241212
  Transmission Date: 20250114
  Serious: Yes (Hospitalization)
  Sender: MERCK KGAA
  Company Number: CN-Merck Healthcare KGaA-2024064738

PATIENT
  Age: 3 Year
  Sex: Male
  Weight: 14 kg

DRUGS (1)
  1. EUTHYROX [Suspect]
     Active Substance: LEVOTHYROXINE SODIUM
     Indication: Intentional product misuse
     Route: 048
     Dates: start: 20240722, end: 20240722

REACTIONS (3)
  - Accidental exposure to product by child [Recovered/Resolved]
  - Myocardial necrosis marker increased [Recovered/Resolved]
  - Thyroxine increased [Recovered/Resolved]

NARRATIVE: CASE EVENT DATE: 20240722
